FAERS Safety Report 26173255 (Version 1)
Quarter: 2025Q4

REPORT INFORMATION
  Report Type: Spontaneous
  Country: US (occurrence: None)
  Receive Date: 20251217
  Receipt Date: 20251217
  Transmission Date: 20260118
  Serious: Yes (Hospitalization)
  Sender: FDA-CTU
  Company Number: None

PATIENT
  Age: 34 Year
  Sex: Female
  Weight: 63 kg

DRUGS (10)
  1. QUVIVIQ [Suspect]
     Active Substance: DARIDOREXANT
     Indication: Insomnia
     Dosage: 50 MG HS ORAL
     Route: 048
     Dates: start: 20250922, end: 20251006
  2. FISH OIL [Concomitant]
     Active Substance: FISH OIL
  3. VITAMIN D [Concomitant]
     Active Substance: VITAMIN D NOS
  4. VITAMIN B [Concomitant]
     Active Substance: VITAMIN B
  5. Align supplement [Concomitant]
  6. DROSPIRENONE\ETHINYL ESTRADIOL [Concomitant]
     Active Substance: DROSPIRENONE\ETHINYL ESTRADIOL
  7. Emolax (polyethylene glycol) [Concomitant]
  8. PAROXETINE [Concomitant]
     Active Substance: PAROXETINE
  9. LOXAPINE [Concomitant]
     Active Substance: LOXAPINE
  10. LORAZEPAM [Concomitant]
     Active Substance: LORAZEPAM

REACTIONS (18)
  - Migraine [None]
  - Nausea [None]
  - Eye pain [None]
  - Pain [None]
  - Dizziness [None]
  - Photophobia [None]
  - Tinnitus [None]
  - Vision blurred [None]
  - Dysarthria [None]
  - Aphasia [None]
  - Asthenia [None]
  - Vomiting [None]
  - Diarrhoea [None]
  - Middle insomnia [None]
  - Therapy interrupted [None]
  - Tinnitus [None]
  - Ear infection [None]
  - Ear discomfort [None]

NARRATIVE: CASE EVENT DATE: 20251017
